FAERS Safety Report 7705543-0 (Version None)
Quarter: 2011Q3

REPORT INFORMATION
  Report Type: 
  Country: None (occurrence: None)
  Receive Date: 20110823
  Receipt Date: 20110823
  Transmission Date: 20111222
  Serious: Yes (Other)
  Sender: FDA-Public Use
  Company Number: None

PATIENT
  Sex: Female
  Weight: 66.7 kg

DRUGS (1)
  1. LETROZOLE [Suspect]
     Indication: BREAST CANCER
     Dosage: 2.5 MG ONE QD PO/ORAL
     Route: 048
     Dates: start: 20110701, end: 20110722

REACTIONS (3)
  - PALPITATIONS [None]
  - HOT FLUSH [None]
  - HYPERHIDROSIS [None]
